FAERS Safety Report 9804371 (Version 1)
Quarter: 2014Q1

REPORT INFORMATION
  Report Type: Spontaneous
  Country: US (occurrence: None)
  Receive Date: 20140106
  Receipt Date: 20140106
  Transmission Date: 20141002
  Serious: Yes (Death)
  Sender: FDA-Public Use
  Company Number: 2013P1022163

PATIENT
  Age: 3 Year
  Sex: Male

DRUGS (1)
  1. ISOTRETINOIN [Suspect]

REACTIONS (1)
  - Death [None]
